FAERS Safety Report 7674837-X (Version None)
Quarter: 2011Q3

REPORT INFORMATION
  Report Type: 
  Country: None (occurrence: None)
  Receive Date: 20110810
  Receipt Date: 20110802
  Transmission Date: 20111222
  Serious: Yes (Other)
  Sender: FDA-Public Use
  Company Number: US-ROCHE-795190

PATIENT
  Sex: Female

DRUGS (4)
  1. ACTONEL [Suspect]
     Route: 065
  2. FOSAMAX [Suspect]
     Route: 065
  3. BONIVA [Suspect]
     Route: 065
  4. ALENDRONATE SODIUM [Suspect]
     Route: 065

REACTIONS (1)
  - TOOTH DISORDER [None]
